FAERS Safety Report 8614764-4 (Version None)
Quarter: 2012Q3

REPORT INFORMATION
  Report Type: 
  Country: None (occurrence: None)
  Receive Date: 20120823
  Receipt Date: 20120817
  Transmission Date: 20120928
  Serious: Yes (Hospitalization)
  Sender: FDA-Public Use
  Company Number: FR-PFIZER INC-2012201674

PATIENT
  Age: 60 Year
  Sex: Male

DRUGS (4)
  1. IMOVANE [Suspect]
     Dosage: 7.5 MG, 1X/DAY - 1DF DAILY
     Route: 048
     Dates: start: 20120722, end: 20120725
  2. FLUCONAZOLE [Suspect]
     Dosage: 400 MG, 1X/DAY
     Route: 042
     Dates: start: 20120720, end: 20120725
  3. BETADINE [Suspect]
     Dosage: 2 L, 1X/DAY
     Dates: start: 20120721, end: 20120726
  4. BETADINE [Suspect]
     Indication: WOUND TREATMENT
     Dosage: 1 L, 1X/DAY
     Route: 061
     Dates: start: 20120720, end: 20120720

REACTIONS (1)
  - TOXIC SKIN ERUPTION [None]
